FAERS Safety Report 15801971 (Version 1)
Quarter: 2019Q1

REPORT INFORMATION
  Report Type: Spontaneous
  Country: US (occurrence: US)
  Receive Date: 20190107
  Receipt Date: 20190107
  Transmission Date: 20190417
  Serious: No
  Sender: FDA-Public Use
  Company Number: None

PATIENT

DRUGS (1)
  1. FLUVOXAMINE MALEATE. [Suspect]
     Active Substance: FLUVOXAMINE MALEATE
     Route: 048

REACTIONS (3)
  - Incorrect dose administered [None]
  - Product dispensing error [None]
  - Device computer issue [None]

NARRATIVE: CASE EVENT DATE: 2018
